FAERS Safety Report 4400104-3 (Version None)
Quarter: 2004Q3

REPORT INFORMATION
  Report Type: 
  Country: None (occurrence: None)
  Receive Date: 20040716
  Receipt Date: 20040625
  Transmission Date: 20050211
  Serious: Yes (Life-Threatening, Hospitalization)
  Sender: FDA-Public Use
  Company Number: JP_040603270

PATIENT
  Age: 72 Year
  Sex: Male
  Weight: 65 kg

DRUGS (9)
  1. GEMZAR [Suspect]
     Indication: LUNG NEOPLASM MALIGNANT
     Dosage: 1400 MG OTHER
     Route: 050
     Dates: start: 20040406, end: 20040518
  2. UFT [Concomitant]
  3. ZANTAC [Concomitant]
  4. GASCON (DIMETICONE) [Concomitant]
  5. HALCION [Concomitant]
  6. DORAL [Concomitant]
  7. PURSENNID [Concomitant]
  8. LOXONIN (LOXOPROFEN SODIUM) [Concomitant]
  9. DEPAS (ETIZOLAM) [Concomitant]

REACTIONS (2)
  - BRONCHOPNEUMONIA [None]
  - INTERSTITIAL LUNG DISEASE [None]
